FAERS Safety Report 4615260-1 (Version None)
Quarter: 2005Q1

REPORT INFORMATION
  Report Type: 
  Country: None (occurrence: None)
  Receive Date: 20050317
  Receipt Date: 20050304
  Transmission Date: 20050727
  Serious: Yes (Death)
  Sender: FDA-Public Use
  Company Number: 2004070936

PATIENT
  Age: 20 Year
  Sex: 0

DRUGS (4)
  1. SERTRALINE (SERTRALINE) [Suspect]
     Indication: ILL-DEFINED DISORDER
  2. METHADONE HYDROCHLORIDE (METHADONE) (METHADONE HYDROCHLORIDE) [Suspect]
     Indication: ILL-DEFINED DISORDER
  3. GABAPENTIN (GABAPENTIN) (GABAPENTIN) [Suspect]
     Indication: ILL-DEFINED DISORDER
  4. ALL OTHER THERAPEUTIC PRODUCTS (ALL OTHER THERAPEUTIC PRODUCTS) [Suspect]
     Indication: ILL-DEFINED DISORDER

REACTIONS (3)
  - DRUG ABUSER [None]
  - INTENTIONAL MISUSE [None]
  - MULTIPLE DRUG OVERDOSE [None]
